FAERS Safety Report 16242799 (Version 1)
Quarter: 2019Q2

REPORT INFORMATION
  Report Type: Spontaneous
  Country: US (occurrence: US)
  Receive Date: 20190322
  Receipt Date: 20190322
  Transmission Date: 20190711
  Serious: Yes (Death, Life-Threatening, Hospitalization)
  Sender: FDA-Public Use
  Company Number: None

PATIENT
  Age: 71 Year
  Sex: Female
  Weight: 99.79 kg

DRUGS (2)
  1. LOSARTAN POTASSIUM 100MG [Suspect]
     Active Substance: LOSARTAN POTASSIUM
     Indication: CARDIAC DISORDER
     Dates: start: 2012, end: 2018
  2. LOSARTAN 25MG POTASSIUM [Suspect]
     Active Substance: LOSARTAN POTASSIUM
     Indication: HYPERTENSION
     Dates: start: 2012, end: 2018

REACTIONS (4)
  - Hepatic cancer [None]
  - Colon cancer [None]
  - Brain neoplasm malignant [None]
  - Unevaluable event [None]

NARRATIVE: CASE EVENT DATE: 20190106
